FAERS Safety Report 8345832 (Version 2)
Quarter: 2012Q4

REPORT INFORMATION
  Report Type: 
  Country: ES (occurrence: ES)
  Receive Date: 20120120
  Receipt Date: 20121016
  Transmission Date: 20130627
  Serious: Yes (Congenital Anomaly)
  Sender: FDA-Public Use
  Company Number: ES-SANOFI-AVENTIS-2012SA002304

PATIENT
  Sex: Female

DRUGS (1)
  1. ARAVA [Suspect]
     Indication: RHEUMATOID ARTHRITIS
     Dosage: therapy start: more than one year ago
     Route: 064
     Dates: start: 20100427, end: 20110115

REACTIONS (5)
  - Teratogenicity [Not Recovered/Not Resolved]
  - Exposure during pregnancy [Unknown]
  - Dilatation ventricular [Not Recovered/Not Resolved]
  - Developmental delay [Not Recovered/Not Resolved]
  - Congenital cystic kidney disease [Not Recovered/Not Resolved]
